FAERS Safety Report 19126262 (Version 2)
Quarter: 2021Q2

REPORT INFORMATION
  Report Type: Spontaneous
  Country: JP (occurrence: JP)
  Receive Date: 20210412
  Receipt Date: 20210503
  Transmission Date: 20210717
  Serious: Yes (Hospitalization, Disabling, Other)
  Sender: FDA-Public Use
  Company Number: JP-PFIZER INC-2021362277

PATIENT
  Age: 67 Year
  Sex: Female
  Weight: 52.8 kg

DRUGS (2)
  1. CORTRIL [Suspect]
     Active Substance: HYDROCORTISONE
     Indication: ADRENOCORTICOTROPIC HORMONE DEFICIENCY
  2. CORTRIL [Suspect]
     Active Substance: HYDROCORTISONE
     Indication: ADRENAL INSUFFICIENCY
     Dosage: 10 MG, DAILY
     Route: 048
     Dates: end: 20210311

REACTIONS (5)
  - Bacterial infection [Recovered/Resolved]
  - Acute kidney injury [Recovered/Resolved]
  - Dental caries [Recovered/Resolved]
  - Osteomyelitis [Recovered/Resolved]
  - Tooth abscess [Recovered/Resolved]

NARRATIVE: CASE EVENT DATE: 20210310
